FAERS Safety Report 6620656-2 (Version None)
Quarter: 2010Q1

REPORT INFORMATION
  Report Type: 
  Country: None (occurrence: None)
  Receive Date: 20100309
  Receipt Date: 20100224
  Transmission Date: 20100710
  Serious: Yes (Other)
  Sender: FDA-Public Use
  Company Number: JP-PFIZER INC-2010026018

PATIENT
  Age: 85 Year
  Sex: Female

DRUGS (3)
  1. GABAPEN [Suspect]
     Indication: HYPOAESTHESIA
     Dosage: FREQUENCY: 2X/DAY,
     Route: 048
     Dates: start: 20100219
  2. RIVOTRIL [Concomitant]
     Dosage: UNK
     Route: 048
  3. NORTRIPTYLINE HCL [Concomitant]
     Dosage: UNK
     Route: 048

REACTIONS (3)
  - CERVICAL NEURITIS [None]
  - DYSARTHRIA [None]
  - GAIT DISTURBANCE [None]
